FAERS Safety Report 6537419-9 (Version None)
Quarter: 2010Q1

REPORT INFORMATION
  Report Type: 
  Country: None (occurrence: None)
  Receive Date: 20100114
  Receipt Date: 20100106
  Transmission Date: 20100710
  Serious: Yes (Hospitalization)
  Sender: FDA-Public Use
  Company Number: US-NAPPMUNDI-USA-2010-0041679

PATIENT
  Sex: Female

DRUGS (1)
  1. DILAUDID [Suspect]
     Indication: DRUG USE FOR UNKNOWN INDICATION
     Dosage: UNK
     Dates: start: 20091224

REACTIONS (7)
  - COGNITIVE DISORDER [None]
  - COMMUNICATION DISORDER [None]
  - CYSTITIS [None]
  - DEPRESSION [None]
  - FALL [None]
  - INJURY [None]
  - SOMNOLENCE [None]
